FAERS Safety Report 24399696 (Version 2)
Quarter: 2025Q2

REPORT INFORMATION
  Report Type: Spontaneous
  Country: US (occurrence: US)
  Receive Date: 20241005
  Receipt Date: 20250528
  Transmission Date: 20250717
  Serious: No
  Sender: SANOFI AVENTIS
  Company Number: US-SA-SAC20240514000163

PATIENT
  Sex: Female
  Weight: 81.6 kg

DRUGS (1)
  1. CERDELGA [Suspect]
     Active Substance: ELIGLUSTAT
     Indication: Gaucher^s disease
     Dosage: 84 MG, BID
     Route: 048
     Dates: start: 20200821

REACTIONS (3)
  - Nasopharyngitis [Unknown]
  - Seasonal allergy [Unknown]
  - Product dose omission in error [Unknown]
